FAERS Safety Report 15459074 (Version 2)
Quarter: 2018Q4

REPORT INFORMATION
  Report Type: Report from Study
  Country: BR (occurrence: BR)
  Receive Date: 20181003
  Receipt Date: 20181016
  Transmission Date: 20190204
  Serious: Yes (Other)
  Sender: FDA-Public Use
  Company Number: PHHY2018BR112326

PATIENT
  Sex: Female
  Weight: 51 kg

DRUGS (2)
  1. EXJADE [Suspect]
     Active Substance: DEFERASIROX
     Indication: SERUM FERRITIN
     Dosage: 2 DF (TABLETS), QD
     Route: 048
     Dates: start: 20180505
  2. EXJADE [Suspect]
     Active Substance: DEFERASIROX
     Dosage: UNK
     Route: 065
     Dates: start: 201808

REACTIONS (9)
  - Sickle cell anaemia with crisis [Recovering/Resolving]
  - Arthralgia [Recovering/Resolving]
  - Abdominal pain [Recovering/Resolving]
  - Serum ferritin increased [Unknown]
  - Nausea [Not Recovered/Not Resolved]
  - Dysentery [Recovering/Resolving]
  - Pain [Recovering/Resolving]
  - Pain in extremity [Recovering/Resolving]
  - Malaise [Recovering/Resolving]
